FAERS Safety Report 8739551 (Version 2)
Quarter: 2013Q1

REPORT INFORMATION
  Report Type: Spontaneous
  Country: US (occurrence: US)
  Receive Date: 20120823
  Receipt Date: 20130109
  Transmission Date: 20140127
  Serious: Yes (Other)
  Sender: FDA-Public Use
  Company Number: US-ROCHE-1061691

PATIENT
  Age: 31 Year
  Sex: Female
  Weight: 93.07 kg

DRUGS (3)
  1. ACCUTANE [Suspect]
     Indication: ACNE
     Route: 048
     Dates: start: 20010917
  2. ACCUTANE [Suspect]
     Route: 048
     Dates: start: 20011109
  3. ACCUTANE [Suspect]
     Dosage: 1 DOSE IN MORNING AND 2 IN NIGHT
     Route: 048
     Dates: start: 20010107, end: 20020430

REACTIONS (10)
  - Inflammatory bowel disease [Unknown]
  - Colitis [Unknown]
  - Emotional distress [Unknown]
  - Depression [Unknown]
  - Irritable bowel syndrome [Unknown]
  - Urticaria [Unknown]
  - Dry skin [Unknown]
  - Blood triglycerides increased [Unknown]
  - Pruritus [Unknown]
  - Blood cholesterol increased [Unknown]
